FAERS Safety Report 5626522-3 (Version None)
Quarter: 2008Q1

REPORT INFORMATION
  Report Type: 
  Country: None (occurrence: None)
  Receive Date: 20080214
  Receipt Date: 20080211
  Transmission Date: 20080703
  Serious: Yes (Other)
  Sender: FDA-Public Use
  Company Number: US-ASTRAZENECA-2008UW02852

PATIENT
  Age: 57 Year
  Sex: Female

DRUGS (7)
  1. ARIMIDEX [Suspect]
     Indication: BREAST CANCER
     Route: 048
     Dates: start: 20070801
  2. SYNTHROID [Concomitant]
  3. ZESTRIL [Concomitant]
     Route: 048
  4. LASIX [Concomitant]
  5. CYMBALTA [Concomitant]
  6. CELEBREX [Concomitant]
  7. LORTAB [Concomitant]

REACTIONS (4)
  - ARTHRITIS [None]
  - HYPOAESTHESIA [None]
  - MOTOR DYSFUNCTION [None]
  - OSTEOARTHRITIS [None]
